FAERS Safety Report 13785427 (Version 1)
Quarter: 2017Q3

REPORT INFORMATION
  Report Type: Spontaneous
  Country: US (occurrence: US)
  Receive Date: 20170724
  Receipt Date: 20170724
  Transmission Date: 20171127
  Serious: Yes (Hospitalization, Other)
  Sender: FDA-Public Use
  Company Number: US-VIFOR (INTERNATIONAL) INC.-VIT-2016-05309

PATIENT
  Age: 72 Year
  Sex: Female

DRUGS (31)
  1. PARACETAMOL/HYDROCODONE BITARTRATE [Concomitant]
  2. ATORVASTATIN [Concomitant]
     Active Substance: ATORVASTATIN
  3. RENAVITE [Concomitant]
     Active Substance: ASCORBIC ACID\BIOTIN\CALCIUM PANTOTHENATE\CYANOCOBALAMIN\FOLIC ACID\NIACINAMIDE\PYRIDOXINE HYDROCHLORIDE\RIBOFLAVIN\THIAMINE MONONITRATE
  4. ACETYLSALICYLIC ACID [Concomitant]
     Active Substance: ASPIRIN
  5. FUROSEMIDE. [Concomitant]
     Active Substance: FUROSEMIDE
  6. HUMALOG [Concomitant]
     Active Substance: INSULIN LISPRO
  7. HYDROCHLOROTHIAZIDE. [Concomitant]
     Active Substance: HYDROCHLOROTHIAZIDE
  8. VELTASSA [Suspect]
     Active Substance: PATIROMER
     Route: 048
     Dates: start: 201701
  9. CLONIDINE. [Concomitant]
     Active Substance: CLONIDINE
  10. NORVASC [Concomitant]
     Active Substance: AMLODIPINE BESYLATE
  11. AMLODIPINE BESILATE [Concomitant]
     Active Substance: AMLODIPINE BESYLATE
  12. FAMOTIDINE. [Concomitant]
     Active Substance: FAMOTIDINE
  13. HYDROCODONE [Concomitant]
     Active Substance: HYDROCODONE
     Indication: PAIN
  14. ZOFRAN [Concomitant]
     Active Substance: ONDANSETRON HYDROCHLORIDE
  15. VELTASSA [Suspect]
     Active Substance: PATIROMER
     Indication: HYPERKALAEMIA
     Route: 048
     Dates: start: 201604
  16. CRESTOR [Concomitant]
     Active Substance: ROSUVASTATIN CALCIUM
  17. FISH OIL [Concomitant]
     Active Substance: FISH OIL
  18. RENAVIT [Concomitant]
  19. LASIX [Concomitant]
     Active Substance: FUROSEMIDE
  20. PROBIOTICS [Concomitant]
     Active Substance: PROBIOTICS NOS
  21. VICTOZA [Concomitant]
     Active Substance: LIRAGLUTIDE
  22. ALLOPURINOL. [Concomitant]
     Active Substance: ALLOPURINOL
  23. COREG [Concomitant]
     Active Substance: CARVEDILOL
  24. HYDRALAZINE HYDROCHLORIDE. [Concomitant]
     Active Substance: HYDRALAZINE HYDROCHLORIDE
  25. GABAPENTIN. [Concomitant]
     Active Substance: GABAPENTIN
  26. VALSARTAN. [Concomitant]
     Active Substance: VALSARTAN
  27. PLAVIX [Concomitant]
     Active Substance: CLOPIDOGREL BISULFATE
  28. COLECALCIFEROL [Concomitant]
     Active Substance: CHOLECALCIFEROL
  29. SODIUM BICARBONATE. [Concomitant]
     Active Substance: SODIUM BICARBONATE
  30. ISOSORBIDE. [Concomitant]
     Active Substance: ISOSORBIDE
  31. PEPCID [Concomitant]
     Active Substance: FAMOTIDINE

REACTIONS (2)
  - Foot amputation [Unknown]
  - Postoperative wound infection [Recovered/Resolved]

NARRATIVE: CASE EVENT DATE: 2016
